FAERS Safety Report 12208361 (Version 2)
Quarter: 2016Q2

REPORT INFORMATION
  Report Type: Spontaneous
  Country: US (occurrence: US)
  Receive Date: 20160324
  Receipt Date: 20160623
  Transmission Date: 20160815
  Serious: Yes (Other)
  Sender: FDA-Public Use
  Company Number: US-BAYER-2016-056574

PATIENT
  Age: 13 Year
  Sex: Male
  Weight: 77 kg

DRUGS (2)
  1. GADAVIST [Suspect]
     Active Substance: GADOBUTROL
     Indication: NUCLEAR MAGNETIC RESONANCE IMAGING BRAIN
     Dosage: 8 ML, UNK
     Route: 042
     Dates: start: 20160301, end: 20160301
  2. GADAVIST [Suspect]
     Active Substance: GADOBUTROL
     Indication: CEREBRAL HAEMANGIOMA

REACTIONS (2)
  - Rash [Recovered/Resolved]
  - Vomiting [Recovered/Resolved]

NARRATIVE: CASE EVENT DATE: 20160301
